FAERS Safety Report 19203813 (Version 2)
Quarter: 2021Q2

REPORT INFORMATION
  Report Type: Spontaneous
  Country: US (occurrence: US)
  Receive Date: 20210501
  Receipt Date: 20210528
  Transmission Date: 20210717
  Serious: No
  Sender: FDA-Public Use
  Company Number: US-ASTRAZENECA-2021A286457

PATIENT
  Sex: Female
  Weight: 77.1 kg

DRUGS (3)
  1. SINGULAIR [Concomitant]
     Active Substance: MONTELUKAST SODIUM
     Indication: ASTHMA
     Route: 048
  2. PULMICORT FLEXHALER [Suspect]
     Active Substance: BUDESONIDE
     Indication: ASTHMA
     Route: 055
  3. PULMICORT FLEXHALER [Suspect]
     Active Substance: BUDESONIDE
     Indication: ASTHMA
     Route: 055

REACTIONS (11)
  - Oral herpes [Recovered/Resolved]
  - Herpes virus infection [Unknown]
  - Wrong technique in device usage process [Unknown]
  - Incorrect dose administered by device [Unknown]
  - Product intolerance [Recovered/Resolved]
  - Intentional device misuse [Unknown]
  - Intentional product misuse [Unknown]
  - Immune system disorder [Unknown]
  - Off label use [Unknown]
  - Device malfunction [Recovered/Resolved]
  - Insurance issue [Unknown]
